FAERS Safety Report 11102533 (Version 2)
Quarter: 2015Q2

REPORT INFORMATION
  Report Type: Spontaneous
  Country: BD (occurrence: BD)
  Receive Date: 20150511
  Receipt Date: 20150519
  Transmission Date: 20150821
  Serious: Yes (Death)
  Sender: FDA-Public Use
  Company Number: BD-SUN PHARMACEUTICAL INDUSTRIES LTD-2015RR-97035

PATIENT
  Age: 35 Year
  Sex: Male

DRUGS (1)
  1. AZITHROMYCIN [Suspect]
     Active Substance: AZITHROMYCIN ANHYDROUS
     Indication: PRODUCT USED FOR UNKNOWN INDICATION
     Dosage: UNK
     Route: 065

REACTIONS (1)
  - Toxic epidermal necrolysis [Fatal]
